FAERS Safety Report 9056565 (Version 1)
Quarter: 2013Q1

REPORT INFORMATION
  Report Type: Spontaneous
  Country: IT (occurrence: IT)
  Receive Date: 20130204
  Receipt Date: 20130204
  Transmission Date: 20140127
  Serious: Yes (Hospitalization)
  Sender: FDA-Public Use
  Company Number: IT-GLAXOSMITHKLINE-B0864780A

PATIENT
  Age: 58 None
  Sex: Male

DRUGS (4)
  1. MALARONE [Suspect]
     Indication: PROPHYLAXIS
     Dosage: 1TAB PER DAY
     Route: 048
     Dates: start: 20130104, end: 20130114
  2. OMNIC [Concomitant]
  3. LEXOTAN [Concomitant]
  4. CARDIOASPIRIN [Concomitant]

REACTIONS (1)
  - Thrombocytopenia [Recovering/Resolving]
